FAERS Safety Report 18715786 (Version 1)
Quarter: 2021Q1

REPORT INFORMATION
  Report Type: Spontaneous
  Country: US (occurrence: US)
  Receive Date: 20210108
  Receipt Date: 20210108
  Transmission Date: 20210419
  Serious: No
  Sender: FDA-Public Use
  Company Number: US-LUPIN PHARMACEUTICALS INC.-2020-02941

PATIENT
  Age: 60 Year
  Sex: Male
  Weight: 86 kg

DRUGS (2)
  1. TESTOSTERONE GEL 1.62% [Suspect]
     Active Substance: TESTOSTERONE
     Indication: BLOOD TESTOSTERONE DECREASED
     Dosage: 3 PUMPS DAILY, (60.75MG) (2 PUMPS TO ONE UPPER ARM AND 1 PUMP ON THE OTHER UPPER ARM FOR A TOTAL OF
     Route: 061
     Dates: start: 202004
  2. TESTOSTERONE GEL 1.62% [Suspect]
     Active Substance: TESTOSTERONE
     Dosage: 3 PUMPS DAILY, (60.75MG) (2 PUMPS TO ONE UPPER ARM AND 1 PUMP ON THE OTHER UPPER ARM FOR A TOTAL OF
     Route: 061
     Dates: start: 20200609, end: 20200615

REACTIONS (2)
  - Device defective [Unknown]
  - Incorrect dose administered by device [Unknown]

NARRATIVE: CASE EVENT DATE: 20200609
